FAERS Safety Report 6989599-9 (Version None)
Quarter: 2010Q3

REPORT INFORMATION
  Report Type: 
  Country: None (occurrence: None)
  Receive Date: 20100916
  Receipt Date: 20100104
  Transmission Date: 20110219
  Serious: Yes (Death)
  Sender: FDA-Public Use
  Company Number: US-PFIZER INC-2010001284

PATIENT
  Age: 47 Year
  Sex: Female

DRUGS (3)
  1. PREGABALIN [Suspect]
     Route: 048
  2. CLONIDINE [Suspect]
     Route: 048
  3. CLONAZEPAM [Suspect]
     Route: 048

REACTIONS (3)
  - CARDIAC ARREST [None]
  - COMPLETED SUICIDE [None]
  - RESPIRATORY ARREST [None]
